FAERS Safety Report 7421894-1 (Version None)
Quarter: 2011Q2

REPORT INFORMATION
  Report Type: 
  Country: None (occurrence: None)
  Receive Date: 20110418
  Receipt Date: 20110406
  Transmission Date: 20111010
  Serious: Yes (Hospitalization, Other)
  Sender: FDA-Public Use
  Company Number: BR-ELI_LILLY_AND_COMPANY-BR201103001221

PATIENT
  Sex: Female
  Weight: 65 kg

DRUGS (9)
  1. PURAN T4 [Concomitant]
     Dosage: UNK, DAILY (1/D)
     Route: 065
  2. ZYPREXA [Suspect]
     Dosage: 10 MG, DAILY (1/D)
     Route: 065
     Dates: start: 20080822
  3. SIFROL [Concomitant]
     Dosage: UNK, 3/D
     Route: 065
  4. THIOCTACID /00213801/ [Concomitant]
     Dosage: UNK, UNKNOWN
     Route: 065
  5. EXELON [Concomitant]
     Indication: PARKINSON'S DISEASE
     Dosage: UNK, UNKNOWN
     Route: 065
  6. GLUCOSAMINE SULFATE W/CHONDROITIN SULFATE [Concomitant]
     Dosage: UNK, UNKNOWN
     Route: 065
  7. CITONEURIN [Concomitant]
     Dosage: UNK, UNKNOWN
     Route: 065
  8. ANGIPRESS [Concomitant]
     Dosage: UNK, UNKNOWN
     Route: 065
  9. ZYLORIC [Concomitant]
     Dosage: UNK, UNKNOWN
     Route: 065

REACTIONS (3)
  - GAIT DISTURBANCE [None]
  - CEREBROVASCULAR ACCIDENT [None]
  - SPEECH DISORDER [None]
